FAERS Safety Report 6311645-6 (Version None)
Quarter: 2009Q3

REPORT INFORMATION
  Report Type: 
  Country: None (occurrence: None)
  Receive Date: 20090817
  Receipt Date: 20090807
  Transmission Date: 20100115
  Serious: Yes (Hospitalization)
  Sender: FDA-Public Use
  Company Number: B0588356A

PATIENT
  Age: 65 Year
  Sex: Female

DRUGS (3)
  1. SALBUTAMOL [Suspect]
     Route: 065
     Dates: start: 20090713, end: 20090713
  2. ANASTROZOLE [Concomitant]
     Indication: BREAST CANCER
     Dosage: 1MG PER DAY
     Route: 048
  3. OMEPRAZOLE [Concomitant]
     Dosage: 20MG PER DAY
     Route: 048

REACTIONS (3)
  - CHEST DISCOMFORT [None]
  - EAR PAIN [None]
  - PALPITATIONS [None]
